FAERS Safety Report 7434004-1 (Version None)
Quarter: 2011Q2

REPORT INFORMATION
  Report Type: 
  Country: None (occurrence: None)
  Receive Date: 20110425
  Receipt Date: 20091226
  Transmission Date: 20111010
  Serious: Yes (Other)
  Sender: FDA-Public Use
  Company Number: US-BAYER-201041903NA

PATIENT
  Sex: Male
  Weight: 72.562 kg

DRUGS (2)
  1. TRASYLOL [Suspect]
     Indication: AORTIC VALVE REPLACEMENT
  2. TRASYLOL [Suspect]
     Indication: CARDIAC OPERATION
     Route: 042
     Dates: start: 19970618, end: 19970618

REACTIONS (4)
  - PAIN [None]
  - CEREBROVASCULAR ACCIDENT [None]
  - INJURY [None]
  - EMOTIONAL DISTRESS [None]
